FAERS Safety Report 4808359-8 (Version None)
Quarter: 2005Q4

REPORT INFORMATION
  Report Type: 
  Country: None (occurrence: None)
  Receive Date: 20051021
  Receipt Date: 20020917
  Transmission Date: 20060501
  Serious: No
  Sender: FDA-Public Use
  Company Number: FR_020901434

PATIENT
  Age: 43 Year
  Sex: Female

DRUGS (3)
  1. ZYPREXA [Suspect]
     Indication: PSYCHOTIC DISORDER
     Dosage: 5 MG/DAY
     Dates: start: 20020601
  2. XANAX [Concomitant]
  3. CITALOPRAM HYDROBROMIDE [Concomitant]

REACTIONS (1)
  - NEUTROPENIA [None]
